FAERS Safety Report 5569743-0 (Version None)
Quarter: 2007Q4

REPORT INFORMATION
  Report Type: 
  Country: None (occurrence: None)
  Receive Date: 20071218
  Receipt Date: 20071214
  Transmission Date: 20080405
  Serious: Yes (Hospitalization)
  Sender: FDA-Public Use
  Company Number: TPG2007A00772

PATIENT
  Age: 73 Year
  Sex: Male

DRUGS (5)
  1. LEUPROLIDE ACETATE [Suspect]
     Indication: NEOPLASM PROSTATE
     Dosage: 11.25 MG (11.25 MG, 1 IN 3 M) SUBCUTANEOUS
     Route: 058
  2. BISOPROLOL (BISOPROLOL) (TABLETS) [Concomitant]
  3. MARCUMAR (PHENPROCOUMON) (3 MILLIGRAM, TABLETS) [Concomitant]
  4. DEFLAMAT (DICLOFENAC SODIUM) (TABLETS) [Concomitant]
  5. ZOMETA [Concomitant]

REACTIONS (2)
  - CUSHING'S SYNDROME [None]
  - PARANEOPLASTIC SYNDROME [None]
